FAERS Safety Report 8960456 (Version 1)
Quarter: 2012Q4

REPORT INFORMATION
  Report Type: Spontaneous
  Country: US (occurrence: None)
  Receive Date: 20121211
  Receipt Date: 20121211
  Transmission Date: 20130627
  Serious: Yes (Life-Threatening, Hospitalization, Other)
  Sender: FDA-Public Use
  Company Number: None

PATIENT
  Sex: Male
  Weight: 117.94 kg

DRUGS (2)
  1. EFFIENT [Suspect]
     Indication: CORONARY STENT PLACEMENT
     Dosage: 10 mg 1 Time/Day
     Dates: start: 20121223
  2. ALEVE [Suspect]
     Indication: BACK PAIN
     Dosage: 220 mg 220--2x/Day
     Dates: start: 201110, end: 20120304

REACTIONS (3)
  - Coronary arterial stent insertion [None]
  - Intestinal haemorrhage [None]
  - Loss of consciousness [None]
